FAERS Safety Report 15405208 (Version 1)
Quarter: 2018Q3

REPORT INFORMATION
  Report Type: Other
  Country: US (occurrence: US)
  Receive Date: 20180920
  Receipt Date: 20180920
  Transmission Date: 20181010
  Serious: Yes (Other)
  Sender: FDA-Public Use
  Company Number: US-LAURUS LABS LIMITED-201800049

PATIENT
  Age: 68 Year
  Sex: Male

DRUGS (2)
  1. TENOFOVIR [Suspect]
     Active Substance: TENOFOVIR
     Indication: HIV INFECTION
  2. LOPINAVIR/RITONAVIR [Suspect]
     Active Substance: LOPINAVIR\RITONAVIR
     Indication: HIV INFECTION

REACTIONS (9)
  - Hypotension [Unknown]
  - Hypokalaemia [Unknown]
  - Delirium [Unknown]
  - Fanconi syndrome acquired [Unknown]
  - Tachypnoea [Unknown]
  - Hyperchloraemia [Unknown]
  - Metabolic acidosis [Unknown]
  - Renal tubular acidosis [Unknown]
  - Pyrexia [Unknown]
